FAERS Safety Report 10046857 (Version 1)
Quarter: 2014Q1

REPORT INFORMATION
  Report Type: Spontaneous
  Country: PE (occurrence: DK)
  Receive Date: 20140331
  Receipt Date: 20140331
  Transmission Date: 20141002
  Serious: Yes (Other)
  Sender: FDA-Public Use
  Company Number: PE-ELI_LILLY_AND_COMPANY-DK201403007369

PATIENT
  Sex: 0

DRUGS (6)
  1. STRATTERA [Suspect]
     Indication: ATTENTION DEFICIT/HYPERACTIVITY DISORDER
     Dosage: 80 MG, UNK
     Route: 064
  2. STRATTERA [Suspect]
     Dosage: 80 MG, QD
     Route: 063
  3. RITALIN [Suspect]
     Indication: PRODUCT USED FOR UNKNOWN INDICATION
     Route: 064
  4. RITALIN [Suspect]
     Route: 063
  5. MOTIRON [Concomitant]
     Indication: PRODUCT USED FOR UNKNOWN INDICATION
     Route: 064
  6. CANNABIS [Concomitant]
     Route: 064

REACTIONS (6)
  - Low birth weight baby [Recovered/Resolved]
  - Maternal exposure before pregnancy [Recovered/Resolved]
  - Foetal exposure during pregnancy [Recovered/Resolved]
  - Exposure during breast feeding [Recovered/Resolved]
  - Feeding disorder neonatal [Recovered/Resolved]
  - Sensory disturbance [Unknown]
